FAERS Safety Report 6243962-2 (Version None)
Quarter: 2009Q2

REPORT INFORMATION
  Report Type: 
  Country: None (occurrence: None)
  Receive Date: 20090623
  Receipt Date: 20090615
  Transmission Date: 20091009
  Serious: Yes (Hospitalization, Other)
  Sender: FDA-Public Use
  Company Number: IPS_01588_2009

PATIENT
  Sex: Female
  Weight: 92.9874 kg

DRUGS (14)
  1. APOKYN [Suspect]
     Indication: PARKINSON'S DISEASE
     Dosage: 0.4 ML QD SUBCUTANEOUS
     Route: 058
     Dates: start: 20090330, end: 20090101
  2. ALLERGY MEDICATION [Concomitant]
  3. REQUIP [Concomitant]
  4. STALEVO 100 [Concomitant]
  5. SINEMET CR [Concomitant]
  6. REMERON [Concomitant]
  7. PAXIL [Concomitant]
  8. THEOPHYLLINE [Concomitant]
  9. KLOR-CON [Concomitant]
  10. SINGULAIR [Concomitant]
  11. CLONIDINE [Concomitant]
  12. LISINOPRIL [Concomitant]
  13. FUROSEMIDE INTENSOL [Concomitant]
  14. BAYER [Concomitant]

REACTIONS (4)
  - CARDIAC DISORDER [None]
  - COUGH [None]
  - DYSPNOEA [None]
  - INCREASED UPPER AIRWAY SECRETION [None]
